FAERS Safety Report 20489538 (Version 3)
Quarter: 2022Q2

REPORT INFORMATION
  Report Type: Spontaneous
  Country: US (occurrence: US)
  Receive Date: 20220218
  Receipt Date: 20220627
  Transmission Date: 20220721
  Serious: Yes (Other)
  Sender: FDA-Public Use
  Company Number: US-PFIZER INC-202200022841

PATIENT
  Age: 68 Year
  Sex: Female

DRUGS (3)
  1. IBRANCE [Suspect]
     Active Substance: PALBOCICLIB
     Dosage: 75 MG, 5 DAYS ON (M-F) AND 2 DAYS OFF (ON WEEKENDS)
     Dates: start: 20161101
  2. IBRANCE [Suspect]
     Active Substance: PALBOCICLIB
     Dosage: 75 MG
     Dates: start: 20170217
  3. IBRANCE [Suspect]
     Active Substance: PALBOCICLIB
     Dosage: 75 MG, DAILY, 5 DAYS ON AND 2 DAYS OFF FOR 4 WEEKS
     Dates: start: 20220106

REACTIONS (11)
  - Cataract [Not Recovered/Not Resolved]
  - Macular degeneration [Unknown]
  - Product dose omission issue [Unknown]
  - Platelet count decreased [Unknown]
  - White blood cell count decreased [Unknown]
  - Red blood cell count decreased [Unknown]
  - Alopecia [Unknown]
  - Onychoclasis [Unknown]
  - Oral mucosal blistering [Unknown]
  - Fatigue [Unknown]
  - Abdominal pain upper [Unknown]
